FAERS Safety Report 11696012 (Version 1)
Quarter: 2015Q4

REPORT INFORMATION
  Report Type: Spontaneous
  Country: US (occurrence: None)
  Receive Date: 20151103
  Receipt Date: 20151103
  Transmission Date: 20160304
  Serious: Yes (Hospitalization)
  Sender: FDA-Public Use
  Company Number: None

PATIENT
  Age: 6 Month
  Sex: Male
  Weight: 64.8 kg

DRUGS (19)
  1. FENTANYL. [Concomitant]
     Active Substance: FENTANYL
  2. METOPROLOL [Concomitant]
     Active Substance: METOPROLOL
  3. PROPOFOL. [Concomitant]
     Active Substance: PROPOFOL
  4. ALBUMIN [Concomitant]
     Active Substance: ALBUMIN (HUMAN)
  5. CEFTRIAXONE. [Concomitant]
     Active Substance: CEFTRIAXONE
  6. ZOSYN [Concomitant]
     Active Substance: PIPERACILLIN SODIUM\TAZOBACTAM SODIUM
  7. SALINE ORAL OTC [Concomitant]
     Active Substance: SODIUM CHLORIDE
  8. HEPARIN [Concomitant]
     Active Substance: HEPARIN SODIUM
  9. LABETALOL [Concomitant]
     Active Substance: LABETALOL\LABETALOL HYDROCHLORIDE
  10. LORAZEPAM. [Concomitant]
     Active Substance: LORAZEPAM
  11. SUCCINYLCHOLINE [Concomitant]
     Active Substance: SUCCINYLCHOLINE
  12. MIDAZOLAM [Concomitant]
     Active Substance: MIDAZOLAM\MIDAZOLAM HYDROCHLORIDE
  13. NITROGLYCERIN 2% TOPICAL OINTMENT [Concomitant]
     Active Substance: NITROGLYCERIN
  14. ROCURONIUM [Concomitant]
     Active Substance: ROCURONIUM BROMIDE
  15. NOREPHINEPHRINE [Concomitant]
     Active Substance: NOREPINEPHRINE\NOREPINEPHRINE BITARTRATE
  16. SOLIRIS [Suspect]
     Active Substance: ECULIZUMAB
     Indication: HAEMOLYTIC URAEMIC SYNDROME
     Route: 042
     Dates: start: 20151009
  17. FUROSEMIDE. [Concomitant]
     Active Substance: FUROSEMIDE
  18. VANCOMYCIN [Concomitant]
     Active Substance: VANCOMYCIN
  19. FENTANYL INFUSION [Concomitant]

REACTIONS (3)
  - Sepsis [None]
  - Cryptococcal fungaemia [None]
  - Pneumonia cryptococcal [None]

NARRATIVE: CASE EVENT DATE: 20151026
